APPROVED DRUG PRODUCT: MEXITIL
Active Ingredient: MEXILETINE HYDROCHLORIDE
Strength: 250MG **Federal Register determination that product was not discontinued or withdrawn for safety or effectiveness reasons**
Dosage Form/Route: CAPSULE;ORAL
Application: N018873 | Product #004
Applicant: BOEHRINGER INGELHEIM
Approved: Dec 30, 1985 | RLD: Yes | RS: No | Type: DISCN